FAERS Safety Report 21049673 (Version 1)
Quarter: 2022Q3

REPORT INFORMATION
  Report Type: Spontaneous
  Country: FR (occurrence: FR)
  Receive Date: 20220706
  Receipt Date: 20220706
  Transmission Date: 20221026
  Serious: Yes (Hospitalization)
  Sender: FDA-Public Use
  Company Number: None

PATIENT
  Age: 80 Year
  Sex: Female
  Weight: 69.8 kg

DRUGS (2)
  1. LEVOFLOXACIN [Suspect]
     Active Substance: LEVOFLOXACIN
     Indication: Product used for unknown indication
     Dosage: UNIT DOSE: 500MG, FREQUENCY TIME: 1 DAYS, DURATION: 54 DAYS
     Route: 048
     Dates: start: 20220309, end: 20220502
  2. LINEZOLID [Suspect]
     Active Substance: LINEZOLID
     Indication: Infection
     Dosage: UNIT DOSE: 600MG, FREQUENCY TIME: 2 DAYS, DURATION: 16 DAYS
     Route: 048
     Dates: start: 20220323, end: 20220408

REACTIONS (3)
  - Anaemia [Recovered/Resolved]
  - Thrombocytopenia [Recovered/Resolved]
  - C-reactive protein increased [Recovered/Resolved]

NARRATIVE: CASE EVENT DATE: 20220408
